FAERS Safety Report 24228974 (Version 4)
Quarter: 2024Q4

REPORT INFORMATION
  Report Type: Spontaneous
  Country: US (occurrence: US)
  Receive Date: 20240820
  Receipt Date: 20241105
  Transmission Date: 20250115
  Serious: No
  Sender: PFIZER
  Company Number: US-PFIZER INC-202400233211

PATIENT
  Age: 13 Year
  Sex: Male

DRUGS (2)
  1. GENOTROPIN [Suspect]
     Active Substance: SOMATROPIN
     Indication: Hypopituitarism
     Dosage: 1.6 MG, ALTERNATE DAY (ALTERNATING 1.6 MG AND 1.8 MG DAILY, 7 DAYS/WK)
  2. GENOTROPIN [Suspect]
     Active Substance: SOMATROPIN
     Indication: Growth hormone deficiency
     Dosage: 1.8 MG, ALTERNATE DAY (ALTERNATING 1.6 MG AND 1.8 MG DAILY, 7 DAYS/WK)

REACTIONS (2)
  - Device breakage [Unknown]
  - Device issue [Unknown]
